FAERS Safety Report 16691943 (Version 1)
Quarter: 2019Q3

REPORT INFORMATION
  Report Type: Spontaneous
  Country: US (occurrence: US)
  Receive Date: 20190812
  Receipt Date: 20190812
  Transmission Date: 20191004
  Serious: No
  Sender: FDA-Public Use
  Company Number: US-BAYER-2019-138927

PATIENT
  Age: 21 Year
  Sex: Male

DRUGS (1)
  1. KOGENATE FS [Suspect]
     Active Substance: ANTIHEMOPHILIC FACTOR, HUMAN RECOMBINANT
     Indication: HAEMOPHILIA
     Dosage: 4700 U, QOD
     Route: 042
     Dates: start: 20190712, end: 20190719

REACTIONS (2)
  - Recalled product administered [None]
  - Recalled product [None]

NARRATIVE: CASE EVENT DATE: 20190712
